FAERS Safety Report 13521756 (Version 1)
Quarter: 2017Q2

REPORT INFORMATION
  Report Type: Spontaneous
  Country: US (occurrence: US)
  Receive Date: 20170508
  Receipt Date: 20170508
  Transmission Date: 20170830
  Serious: Yes (Life-Threatening, Hospitalization, Other)
  Sender: FDA-Public Use
  Company Number: US-ACCORD-051182

PATIENT
  Age: 71 Year
  Sex: Female

DRUGS (1)
  1. ALLOPURINOL. [Suspect]
     Active Substance: ALLOPURINOL
     Indication: GOUT

REACTIONS (12)
  - Renal tubular necrosis [Unknown]
  - Intestinal perforation [Unknown]
  - Hypotension [Unknown]
  - Hyperglycaemia [Unknown]
  - Toxic epidermal necrolysis [Recovered/Resolved]
  - Acute kidney injury [Unknown]
  - Gastric ulcer [Unknown]
  - Sepsis [Unknown]
  - Metabolic acidosis [Unknown]
  - Hypernatraemia [Unknown]
  - Ileus [Unknown]
  - Oesophagitis [Unknown]
